FAERS Safety Report 19292835 (Version 1)
Quarter: 2021Q2

REPORT INFORMATION
  Report Type: Spontaneous
  Country: US (occurrence: US)
  Receive Date: 20210522
  Receipt Date: 20210522
  Transmission Date: 20210717
  Serious: Yes (Hospitalization)
  Sender: FDA-Public Use
  Company Number: None

PATIENT
  Age: 25 Year
  Sex: Female
  Weight: 99 kg

DRUGS (1)
  1. DUPIXENT [Suspect]
     Active Substance: DUPILUMAB
     Indication: DERMATITIS ATOPIC
     Dosage: ?          QUANTITY:1 INJECTION(S);OTHER FREQUENCY:TWICE A MONTH;OTHER ROUTE:INJECTION INTO STOMACH AREA?
     Dates: start: 20200817, end: 20210225

REACTIONS (3)
  - Eyelid pain [None]
  - Swelling of eyelid [None]
  - Eye discharge [None]

NARRATIVE: CASE EVENT DATE: 20200320
